FAERS Safety Report 18255253 (Version 2)
Quarter: 2025Q3

REPORT INFORMATION
  Report Type: Spontaneous
  Country: US (occurrence: US)
  Receive Date: 20200911
  Receipt Date: 20250801
  Transmission Date: 20251020
  Serious: Yes (Hospitalization)
  Sender: QILU PHARMACEUTICAL
  Company Number: None

PATIENT
  Age: 27 Year
  Sex: Female

DRUGS (8)
  1. OLANZAPINE [Suspect]
     Active Substance: OLANZAPINE
     Indication: Agitation
     Route: 065
  2. OLANZAPINE [Suspect]
     Active Substance: OLANZAPINE
     Route: 065
  3. LITHIUM [Suspect]
     Active Substance: LITHIUM
     Indication: Product used for unknown indication
     Route: 048
  4. LITHIUM [Suspect]
     Active Substance: LITHIUM
     Route: 048
  5. LITHIUM [Suspect]
     Active Substance: LITHIUM
     Route: 048
  6. LITHIUM [Suspect]
     Active Substance: LITHIUM
     Route: 048
  7. LITHIUM [Suspect]
     Active Substance: LITHIUM
     Route: 048
  8. RISPERIDONE [Concomitant]
     Active Substance: RISPERIDONE
     Indication: Product used for unknown indication
     Route: 065

REACTIONS (3)
  - Antipsychotic drug level below therapeutic [Recovering/Resolving]
  - Hypertransaminasaemia [Unknown]
  - Oedema [Recovered/Resolved]
